FAERS Safety Report 7977807-7 (Version None)
Quarter: 2011Q4

REPORT INFORMATION
  Report Type: 
  Country: None (occurrence: None)
  Receive Date: 20111214
  Receipt Date: 20111130
  Transmission Date: 20120403
  Serious: No
  Sender: FDA-Public Use
  Company Number: US-AMGEN-USASP2011063475

PATIENT
  Age: 19 Year
  Sex: Male

DRUGS (3)
  1. RAPTIVA [Concomitant]
  2. ENBREL [Suspect]
     Indication: PSORIASIS
     Dosage: UNK
     Dates: start: 20040401, end: 20060401
  3. HUMIRA [Concomitant]

REACTIONS (1)
  - PSORIASIS [None]
